FAERS Safety Report 6434968-9 (Version None)
Quarter: 2009Q4

REPORT INFORMATION
  Report Type: 
  Country: None (occurrence: None)
  Receive Date: 20091110
  Receipt Date: 20091026
  Transmission Date: 20100525
  Serious: Yes (Other)
  Sender: FDA-Public Use
  Company Number: BR-PFIZER INC-2009216922

PATIENT
  Age: 66 Year
  Sex: Female
  Weight: 90 kg

DRUGS (6)
  1. NEURONTIN [Suspect]
     Indication: MUSCULOSKELETAL PAIN
     Dosage: ONE ADMINISTRATION WEEKLY
     Dates: start: 20080101
  2. FELDENE [Suspect]
     Indication: MUSCULOSKELETAL PAIN
     Dosage: ONE ADMINISTRATION WEEKLY
     Dates: start: 20080101
  3. TOFRANIL [Concomitant]
     Indication: DEPRESSION
     Dosage: UNK
  4. AZOPT [Concomitant]
     Indication: GLAUCOMA
     Dosage: UNK
  5. COMBIGAN [Concomitant]
     Indication: GLAUCOMA
     Dosage: UNK
  6. XALATAN [Concomitant]
     Indication: GLAUCOMA
     Dosage: UNK

REACTIONS (4)
  - DRUG DISPENSING ERROR [None]
  - FALL [None]
  - FEMUR FRACTURE [None]
  - SCIATIC NERVE NEUROPATHY [None]
